FAERS Safety Report 10268628 (Version 1)
Quarter: 2014Q2

REPORT INFORMATION
  Report Type: Spontaneous
  Country: US (occurrence: US)
  Receive Date: 20140630
  Receipt Date: 20140630
  Transmission Date: 20141212
  Serious: No
  Sender: FDA-Public Use
  Company Number: US-PFIZER INC-2014174241

PATIENT
  Age: 59 Year
  Sex: Female

DRUGS (1)
  1. BOSULIF [Suspect]
     Dosage: 500 MG, DAILY
     Route: 048
     Dates: start: 20140530, end: 20140613

REACTIONS (2)
  - Diarrhoea [Unknown]
  - Abdominal pain upper [Unknown]
